FAERS Safety Report 4339815-7 (Version None)
Quarter: 2004Q2

REPORT INFORMATION
  Report Type: 
  Country: None (occurrence: None)
  Receive Date: 20040414
  Receipt Date: 20040414
  Transmission Date: 20050107
  Serious: No
  Sender: FDA-Public Use
  Company Number: None

PATIENT
  Sex: Female

DRUGS (1)
  1. SEPTOCAINE [Suspect]
     Route: 004
     Dates: start: 20030417

REACTIONS (4)
  - ANAESTHETIC COMPLICATION [None]
  - DROOLING [None]
  - HYPOAESTHESIA [None]
  - PARAESTHESIA [None]
